FAERS Safety Report 17810086 (Version 1)
Quarter: 2020Q2

REPORT INFORMATION
  Report Type: Spontaneous
  Country: BR (occurrence: BR)
  Receive Date: 20200521
  Receipt Date: 20200521
  Transmission Date: 20200714
  Serious: Yes (Other)
  Sender: FDA-Public Use
  Company Number: BR-ABBVIE-20P-020-3410374-00

PATIENT
  Sex: Female
  Weight: 12.6 kg

DRUGS (6)
  1. DEPAKENE [Suspect]
     Active Substance: VALPROIC ACID
     Indication: SEIZURE
     Dosage: DOSE OF 3 OR 4 ML;  REPLACED BY DEPAKENE 250MG, 50MG/ML
     Route: 048
  2. CANNABIDIOL [Concomitant]
     Active Substance: CANNABIDIOL
     Indication: SEIZURE
  3. LAVITAN A Z MAIS [Concomitant]
     Indication: APPETITE DISORDER
     Dosage: DAILY DOSE 2 TABLET, MORNING/NIGHT;
     Route: 048
  4. VIGABATRIN. [Concomitant]
     Active Substance: VIGABATRIN
     Indication: INFANTILE SPASMS
     Dosage: TABLET IS SPLIT IN 4 PIECES
     Route: 048
  5. KEPPRA [Concomitant]
     Active Substance: LEVETIRACETAM
     Indication: INFANTILE SPASMS
     Dosage: DAILY DOSE 2 MILLILITER, ADMINISTERED TOGETHER WITH DEPAKENE
     Route: 048
  6. DEPAKENE [Suspect]
     Active Substance: VALPROIC ACID
     Indication: SEIZURE
     Route: 048

REACTIONS (11)
  - Erythema [Unknown]
  - Urinary incontinence [Not Recovered/Not Resolved]
  - Choking [Not Recovered/Not Resolved]
  - Salivary hypersecretion [Unknown]
  - Oral disorder [Unknown]
  - Product use issue [Unknown]
  - Hypoaesthesia oral [Unknown]
  - Epilepsy [Unknown]
  - Aspiration [Unknown]
  - Crying [Unknown]
  - Wrong technique in product usage process [Unknown]
